FAERS Safety Report 4640036-9 (Version None)
Quarter: 2005Q2

REPORT INFORMATION
  Report Type: 
  Country: None (occurrence: None)
  Receive Date: 20050415
  Receipt Date: 20050415
  Transmission Date: 20051028
  Serious: Yes (Other)
  Sender: FDA-Public Use
  Company Number: None

PATIENT
  Sex: Female
  Weight: 88.4514 kg

DRUGS (9)
  1. AMBIEN [Suspect]
     Indication: INSOMNIA
     Dosage: 5 MG-1/2 TAB ONCE A DAY ORAL
     Route: 048
     Dates: start: 20050219, end: 20050410
  2. METFORMIN HCL [Concomitant]
  3. GLIPIZIDE [Concomitant]
  4. SYNTHROID [Concomitant]
  5. TRIAMTERENE AND HYDROCHLOROTHIAZIDE [Concomitant]
  6. LOTENSIN [Concomitant]
  7. PHENYTOIN [Concomitant]
  8. SERZONE [Concomitant]
  9. LEXAPRO [Concomitant]

REACTIONS (4)
  - AMNESIA [None]
  - ANXIETY [None]
  - CONFUSIONAL STATE [None]
  - IMPAIRED WORK ABILITY [None]
